FAERS Safety Report 4667262-7 (Version None)
Quarter: 2005Q2

REPORT INFORMATION
  Report Type: 
  Country: None (occurrence: None)
  Receive Date: 20050421
  Receipt Date: 20050131
  Transmission Date: 20051028
  Serious: Yes (Hospitalization)
  Sender: FDA-Public Use
  Company Number: 2005009216

PATIENT
  Age: 82 Year
  Sex: Female

DRUGS (1)
  1. EPLERENONE (EPLERENONE) [Suspect]
     Indication: ILL-DEFINED DISORDER
     Dosage: ORAL
     Route: 048
     Dates: start: 20040101

REACTIONS (1)
  - BLOOD CREATININE INCREASED [None]
